FAERS Safety Report 21173753 (Version 1)
Quarter: 2022Q3

REPORT INFORMATION
  Report Type: Spontaneous
  Country: IE (occurrence: IE)
  Receive Date: 20220804
  Receipt Date: 20220804
  Transmission Date: 20221027
  Serious: Yes (Hospitalization)
  Sender: FDA-Public Use
  Company Number: IE-NOVARTISPH-NVSC2022IE176193

PATIENT

DRUGS (1)
  1. CLARITHROMYCIN [Suspect]
     Active Substance: CLARITHROMYCIN
     Indication: Product used for unknown indication
     Dosage: UNK, BID (500MG, BID X 7DAYS)
     Route: 065

REACTIONS (11)
  - Thinking abnormal [Unknown]
  - Anxiety [Unknown]
  - Intentional self-injury [Unknown]
  - Seizure [Unknown]
  - Abnormal behaviour [Unknown]
  - Aggression [Unknown]
  - Delusion [Unknown]
  - Insomnia [Unknown]
  - Disorientation [Unknown]
  - Dizziness [Unknown]
  - Confusional state [Unknown]

NARRATIVE: CASE EVENT DATE: 20210812
